FAERS Safety Report 18439569 (Version 5)
Quarter: 2021Q4

REPORT INFORMATION
  Report Type: Report from Study
  Country: None (occurrence: US)
  Receive Date: 20201029
  Receipt Date: 20211202
  Transmission Date: 20220303
  Serious: No
  Sender: FDA-Public Use
  Company Number: US-AKCEA THERAPEUTICS-2020IS001387

PATIENT
  Age: 73 Year
  Sex: Male

DRUGS (4)
  1. TEGSEDI [Suspect]
     Active Substance: INOTERSEN SODIUM
     Indication: Hereditary neuropathic amyloidosis
     Route: 058
     Dates: start: 20190125
  2. DEVICE [Suspect]
     Active Substance: DEVICE
  3. TEGSEDI [Suspect]
     Active Substance: INOTERSEN SODIUM
     Route: 058
     Dates: start: 20191018
  4. TEGSEDI [Suspect]
     Active Substance: INOTERSEN SODIUM
     Route: 058
     Dates: start: 20190129

REACTIONS (9)
  - Urine protein/creatinine ratio increased [Not Recovered/Not Resolved]
  - Blood bilirubin abnormal [Recovered/Resolved]
  - Blood creatinine increased [Recovered/Resolved]
  - Glomerular filtration rate decreased [Recovered/Resolved]
  - Platelet count decreased [Recovered/Resolved]
  - Product distribution issue [Unknown]
  - Chills [Not Recovered/Not Resolved]
  - Urine ketone body present [Unknown]
  - Urine abnormality [Unknown]

NARRATIVE: CASE EVENT DATE: 20210917
